FAERS Safety Report 8033417-7 (Version None)
Quarter: 2012Q1

REPORT INFORMATION
  Report Type: 
  Country: None (occurrence: None)
  Receive Date: 20120110
  Receipt Date: 20120105
  Transmission Date: 20120608
  Serious: Yes (Hospitalization, Other)
  Sender: FDA-Public Use
  Company Number: PHFR2011IE06026

PATIENT
  Sex: Male

DRUGS (6)
  1. TROSPIUM CHLORIDE [Concomitant]
     Indication: HYPERTONIC BLADDER
     Dosage: 20 MG, DAILY
     Route: 048
  2. CLONAZEPAM [Concomitant]
     Dosage: 0.25 MG, DAILY
     Route: 048
  3. CLOZARIL [Suspect]
     Indication: SCHIZOPHRENIA
     Route: 048
     Dates: start: 20090917
  4. AMITRIPTYLINE HCL [Concomitant]
     Dosage: 75 MG, DAILY
     Route: 048
  5. CLONAZEPAM [Concomitant]
     Dosage: 0.25 MG, DAILY
     Route: 048
  6. AMITRIPTYLINE HCL [Concomitant]
     Dosage: 75 MG, DAILY
     Route: 048

REACTIONS (3)
  - BLOOD CREATINE PHOSPHOKINASE INCREASED [None]
  - FALL [None]
  - CONVULSION [None]
